FAERS Safety Report 19086626 (Version 1)
Quarter: 2021Q2

REPORT INFORMATION
  Report Type: Spontaneous
  Country: US (occurrence: US)
  Receive Date: 20210402
  Receipt Date: 20210402
  Transmission Date: 20210717
  Serious: No
  Sender: FDA-Public Use
  Company Number: None

PATIENT
  Age: 24 Year
  Sex: Female
  Weight: 60.75 kg

DRUGS (2)
  1. KANK?A MOUTH PAIN [Suspect]
     Active Substance: BENZOCAINE
     Indication: APHTHOUS ULCER
     Route: 061
     Dates: start: 20210331, end: 20210401
  2. CABERGOLINE. [Concomitant]
     Active Substance: CABERGOLINE

REACTIONS (5)
  - Haemorrhage [None]
  - Application site swelling [None]
  - Application site erythema [None]
  - Noninfective gingivitis [None]
  - Application site pain [None]

NARRATIVE: CASE EVENT DATE: 20210401
